FAERS Safety Report 5407142-2 (Version None)
Quarter: 2007Q3

REPORT INFORMATION
  Report Type: 
  Country: None (occurrence: None)
  Receive Date: 20070803
  Receipt Date: 20070803
  Transmission Date: 20080115
  Serious: Yes (Other)
  Sender: FDA-Public Use
  Company Number: None

PATIENT
  Sex: Male
  Weight: 89.1 kg

DRUGS (1)
  1. SUNITINIB 50 MG PFIZER [Suspect]
     Indication: GLIOBLASTOMA MULTIFORME
     Dosage: 50 MG DAILY PO
     Route: 048
     Dates: start: 20070502, end: 20070719

REACTIONS (2)
  - MUCOSAL INFLAMMATION [None]
  - PLATELET COUNT DECREASED [None]
